FAERS Safety Report 5053411-8 (Version None)
Quarter: 2006Q2

REPORT INFORMATION
  Report Type: 
  Country: None (occurrence: None)
  Receive Date: 20060614
  Receipt Date: 20060306
  Transmission Date: 20061013
  Serious: Yes (Other)
  Sender: FDA-Public Use
  Company Number: 436855

PATIENT
  Age: 52 Year
  Sex: Female
  Weight: 96.6 kg

DRUGS (1)
  1. BONIVA [Suspect]
     Indication: OSTEOPOROSIS
     Dosage: 1 PER MONTH ORAL
     Route: 048
     Dates: start: 20051215, end: 20060105

REACTIONS (3)
  - LOOSE TOOTH [None]
  - PAIN IN JAW [None]
  - TOOTH DISORDER [None]
